FAERS Safety Report 5657115-X (Version None)
Quarter: 2008Q1

REPORT INFORMATION
  Report Type: 
  Country: None (occurrence: None)
  Receive Date: 20080310
  Receipt Date: 20080228
  Transmission Date: 20080703
  Serious: Yes (Hospitalization)
  Sender: FDA-Public Use
  Company Number: US-JNJFOC-20080300307

PATIENT
  Sex: Male

DRUGS (3)
  1. TOPAMAX [Suspect]
     Indication: DRUG USE FOR UNKNOWN INDICATION
     Route: 048
  2. LAMICTAL [Suspect]
     Route: 048
  3. LAMICTAL [Suspect]
     Indication: CONVULSION
     Route: 048

REACTIONS (1)
  - INTENTIONAL OVERDOSE [None]
